FAERS Safety Report 5344317-5 (Version None)
Quarter: 2007Q2

REPORT INFORMATION
  Report Type: 
  Country: None (occurrence: None)
  Receive Date: 20070604
  Receipt Date: 20070520
  Transmission Date: 20071010
  Serious: Yes (Hospitalization)
  Sender: FDA-Public Use
  Company Number: GB-ROCHE-499270

PATIENT
  Age: 41 Year
  Sex: Female

DRUGS (3)
  1. XENICAL [Suspect]
     Indication: OBESITY
     Route: 048
     Dates: start: 20070116, end: 20070401
  2. TRAMADOL HCL [Concomitant]
     Indication: FIBROMYALGIA
     Route: 048
  3. IBUPROFEN [Concomitant]
     Indication: FIBROMYALGIA
     Route: 048

REACTIONS (2)
  - ABDOMINAL PAIN [None]
  - CHOLECYSTECTOMY [None]
